FAERS Safety Report 9706048 (Version 1)
Quarter: 2013Q4

REPORT INFORMATION
  Report Type: Spontaneous
  Country: SE (occurrence: SE)
  Receive Date: 20131123
  Receipt Date: 20131123
  Transmission Date: 20140711
  Serious: Yes (Other)
  Sender: FDA-Public Use
  Company Number: SE-AMGEN-SWESP2013081634

PATIENT
  Age: 72 Year
  Sex: Female

DRUGS (20)
  1. PROLIA [Suspect]
     Indication: OSTEOPOROSIS
     Dosage: 60 MG, ONCE IN A YEAR
     Route: 065
     Dates: start: 20120808
  2. CORTISON [Concomitant]
     Dosage: 6.25 MG, QD
     Dates: start: 20110301
  3. OMEPRAZOL                          /00661201/ [Concomitant]
     Dosage: 10 MG, QD
     Dates: start: 20130603
  4. LANTUS [Concomitant]
     Dosage: 20 IU, QD
     Dates: start: 20110301
  5. CALCICHEW-D3 FORTE [Concomitant]
     Dosage: UNK UNK, QD
     Route: 048
     Dates: start: 20110614
  6. BEHEPAN [Concomitant]
     Dosage: 1 MG, QD
     Route: 048
     Dates: start: 20130610
  7. FURIX [Concomitant]
     Dosage: 30 MG, QD
     Route: 048
     Dates: start: 20131014
  8. METOPROLOL [Concomitant]
     Dosage: 50 MG, QD
     Route: 048
     Dates: start: 20110927
  9. AMLODIPIN                          /00972401/ [Concomitant]
     Dosage: 5 MG, QD
     Route: 048
     Dates: start: 20110924
  10. LOSARTAN [Concomitant]
     Dosage: 12.5 MG, BID
     Route: 048
     Dates: start: 20110927
  11. LIPITOR [Concomitant]
     Dosage: 40 MG, QD
     Route: 048
     Dates: start: 20110927
  12. FLORINEF [Concomitant]
     Dosage: 0.1 MG, QD
     Dates: start: 20110225
  13. ALVEDON [Concomitant]
     Dosage: 500 MG, AS NECESSARY
     Route: 048
     Dates: start: 20120924
  14. TROMBYL [Concomitant]
     Dosage: 75 MG, 1 IN 2 DAYS
     Route: 048
     Dates: start: 20120115
  15. ETALPHA [Concomitant]
     Dosage: 0.25 MG, 2 TIMES/WK
     Route: 048
     Dates: start: 20120417
  16. DIVISUN [Concomitant]
     Dosage: 800 IU, QD
     Route: 048
     Dates: start: 20121203
  17. ACTRAPID                           /00646001/ [Concomitant]
     Dosage: 15 IU, QD
     Dates: start: 20110311
  18. BETNOVAT                           /00008501/ [Concomitant]
     Dosage: UNK UNK, QD
     Route: 061
     Dates: start: 20130930
  19. PROPYLESS [Concomitant]
     Dosage: UNK UNK, QD
     Route: 061
     Dates: start: 20131014
  20. SALICYLVASELIN [Concomitant]
     Dosage: 1 DF, QD
     Route: 061
     Dates: start: 20130610

REACTIONS (1)
  - Osteonecrosis [Not Recovered/Not Resolved]
